FAERS Safety Report 8935468 (Version 1)
Quarter: 2012Q4

REPORT INFORMATION
  Report Type: Spontaneous
  Country: US (occurrence: None)
  Receive Date: 20121128
  Receipt Date: 20121128
  Transmission Date: 20130627
  Serious: Yes (Hospitalization)
  Sender: FDA-Public Use
  Company Number: None

PATIENT
  Age: 70 Year
  Sex: Female

DRUGS (8)
  1. GLIPIZIDE [Suspect]
     Indication: TYPE II DIABETES MELLITUS
     Dosage: chronic
     Route: 048
  2. LISINOPRIL [Concomitant]
  3. CLONIDINE [Concomitant]
  4. RANITIDINE [Concomitant]
  5. LASIX [Concomitant]
  6. B12 [Concomitant]
  7. COREG [Concomitant]
  8. METFORMIN [Concomitant]

REACTIONS (2)
  - Unresponsive to stimuli [None]
  - Hypoglycaemia [None]
